FAERS Safety Report 5096240-1 (Version None)
Quarter: 2006Q3

REPORT INFORMATION
  Report Type: 
  Country: None (occurrence: None)
  Receive Date: 20060905
  Receipt Date: 20060824
  Transmission Date: 20061208
  Serious: Yes (Other)
  Sender: FDA-Public Use
  Company Number: BR-ROCHE-460918

PATIENT
  Age: 71 Year
  Sex: Female
  Weight: 45 kg

DRUGS (7)
  1. BONIVA [Suspect]
     Indication: OSTEOPOROSIS
     Route: 048
     Dates: start: 20060806
  2. GLIFAGE [Concomitant]
  3. NAPRIX [Concomitant]
     Indication: HYPERTENSION
  4. BENERVA [Concomitant]
  5. CARDIZEM [Concomitant]
  6. METICORTEN [Concomitant]
     Dosage: INDICATION REPORTED AS CORTICOSTEROID
  7. LESCOL [Concomitant]

REACTIONS (3)
  - ASTHMA [None]
  - INCREASED BRONCHIAL SECRETION [None]
  - RESPIRATORY TRACT INFECTION [None]
